FAERS Safety Report 22086060 (Version 1)
Quarter: 2023Q1

REPORT INFORMATION
  Report Type: Spontaneous
  Country: IT (occurrence: IT)
  Receive Date: 20230310
  Receipt Date: 20230310
  Transmission Date: 20230418
  Serious: Yes (Death, Disabling, Other)
  Sender: FDA-Public Use
  Company Number: IT-MERCK-0602ITA00004

PATIENT
  Age: 60 Year
  Sex: Male

DRUGS (1)
  1. VIOXX [Suspect]
     Active Substance: ROFECOXIB
     Indication: Osteoarthritis
     Dosage: 25 MG, QD
     Route: 048
     Dates: start: 200101, end: 200206

REACTIONS (7)
  - Death [Fatal]
  - Myocardial infarction [Recovered/Resolved with Sequelae]
  - Coronary artery disease [Not Recovered/Not Resolved]
  - Retinopathy [Not Recovered/Not Resolved]
  - Neuropathy peripheral [Not Recovered/Not Resolved]
  - Diabetes mellitus [Not Recovered/Not Resolved]
  - Depression [Not Recovered/Not Resolved]

NARRATIVE: CASE EVENT DATE: 20020620
